FAERS Safety Report 21441733 (Version 4)
Quarter: 2025Q2

REPORT INFORMATION
  Report Type: Spontaneous
  Country: US (occurrence: US)
  Receive Date: 20221011
  Receipt Date: 20250522
  Transmission Date: 20250716
  Serious: No
  Sender: SANOFI AVENTIS
  Company Number: US-SA-SAC20221010000845

PATIENT
  Age: 41 Year
  Sex: Female

DRUGS (1)
  1. DUPIXENT [Suspect]
     Active Substance: DUPILUMAB
     Indication: Dermatitis atopic
     Dosage: 300 MG, QOW
     Route: 058
     Dates: start: 20220908

REACTIONS (5)
  - Injection site pain [Unknown]
  - Condition aggravated [Unknown]
  - Injection site bruising [Unknown]
  - Surgery [Unknown]
  - Device defective [Unknown]

NARRATIVE: CASE EVENT DATE: 20250415
